FAERS Safety Report 8188381-7 (Version None)
Quarter: 2012Q1

REPORT INFORMATION
  Report Type: 
  Country: None (occurrence: None)
  Receive Date: 20120306
  Receipt Date: 20120221
  Transmission Date: 20120608
  Serious: Yes (Hospitalization)
  Sender: FDA-Public Use
  Company Number: PHHY2010US63840

PATIENT
  Sex: Female
  Weight: 94 kg

DRUGS (9)
  1. GLEEVEC [Suspect]
     Dosage: 400 MG, QD
     Route: 048
     Dates: start: 20100908, end: 20110410
  2. GLEEVEC [Suspect]
     Indication: CHRONIC MYELOID LEUKAEMIA
     Dosage: 600 MG, QD
     Route: 048
     Dates: start: 20110510, end: 20110911
  3. ATENOLOL [Concomitant]
     Dosage: 100 MG, UNK
     Route: 048
  4. GLEEVEC [Suspect]
     Dosage: 300 MG, BID
     Route: 048
  5. ASPIRIN [Concomitant]
     Dosage: 81 MG, UNK
     Route: 048
  6. OMEPRAZOLE [Concomitant]
     Dosage: 60 MG, UNK
     Route: 048
  7. GLEEVEC [Suspect]
     Dosage: 200 MG, PER DAY
     Route: 048
  8. LISINOPRIL [Concomitant]
     Dosage: 60 MG, UNK
     Route: 048
  9. GLYBURIDE [Concomitant]
     Dosage: 2.5 MG, UNK
     Route: 048

REACTIONS (6)
  - BLOOD GLUCOSE DECREASED [None]
  - DEHYDRATION [None]
  - PNEUMONIA [None]
  - DIARRHOEA [None]
  - HYPOGLYCAEMIA [None]
  - DECREASED APPETITE [None]
